FAERS Safety Report 6717139-8 (Version None)
Quarter: 2010Q2

REPORT INFORMATION
  Report Type: 
  Country: None (occurrence: None)
  Receive Date: 20100505
  Receipt Date: 20100428
  Transmission Date: 20101027
  Serious: Yes (Hospitalization)
  Sender: FDA-Public Use
  Company Number: 009647

PATIENT
  Sex: Female
  Weight: 46.2 kg

DRUGS (9)
  1. LEVETIRACETAM [Suspect]
     Indication: PARTIAL SEIZURES
     Dosage: (500 MG BID ORAL), (1000 MG BID ORAL), (1500 MG BID ORAL)
     Route: 048
     Dates: start: 20070608, end: 20070706
  2. LEVETIRACETAM [Suspect]
     Indication: PARTIAL SEIZURES
     Dosage: (500 MG BID ORAL), (1000 MG BID ORAL), (1500 MG BID ORAL)
     Route: 048
     Dates: start: 20070706, end: 20070831
  3. LEVETIRACETAM [Suspect]
     Indication: PARTIAL SEIZURES
     Dosage: (500 MG BID ORAL), (1000 MG BID ORAL), (1500 MG BID ORAL)
     Route: 048
     Dates: start: 20070831
  4. FOLIC ACID [Concomitant]
  5. PHENYTOIN [Concomitant]
  6. CLOBAZAM [Concomitant]
  7. TOPIRAMATE [Concomitant]
  8. URSODIOL [Concomitant]
  9. KETOPROFEN [Concomitant]

REACTIONS (1)
  - PNEUMONIA MYCOPLASMAL [None]
